FAERS Safety Report 16784973 (Version 4)
Quarter: 2019Q4

REPORT INFORMATION
  Report Type: Spontaneous
  Country: CN (occurrence: CN)
  Receive Date: 20190909
  Receipt Date: 20191121
  Transmission Date: 20200122
  Serious: Yes (Hospitalization, Other)
  Sender: FDA-Public Use
  Company Number: CN-GILEAD-2019-0426700

PATIENT
  Age: 48 Year
  Sex: Female

DRUGS (1)
  1. ADEFOVIR DIPIVOXIL. [Suspect]
     Active Substance: ADEFOVIR DIPIVOXIL
     Indication: CHRONIC HEPATITIS B
     Dosage: 10 UNK
     Route: 065

REACTIONS (2)
  - Fanconi syndrome acquired [Unknown]
  - Osteoporosis [Unknown]

NARRATIVE: CASE EVENT DATE: 201305
